FAERS Safety Report 4524654-4 (Version None)
Quarter: 2004Q4

REPORT INFORMATION
  Report Type: 
  Country: None (occurrence: None)
  Receive Date: 20041211
  Receipt Date: 20041130
  Transmission Date: 20050328
  Serious: Yes (Death, Hospitalization)
  Sender: FDA-Public Use
  Company Number: JP-MERCK-0412USA00420

PATIENT
  Age: 66 Year
  Sex: Female

DRUGS (12)
  1. DECADRON [Suspect]
     Indication: MULTIPLE MYELOMA
     Route: 048
     Dates: start: 20021023, end: 20021026
  2. DECADRON [Suspect]
     Route: 048
     Dates: start: 20021101, end: 20021104
  3. DECADRON [Suspect]
     Route: 048
     Dates: start: 20021207, end: 20021210
  4. DECADRON [Suspect]
     Route: 048
     Dates: start: 20021215, end: 20021218
  5. VINCRISTINE SULFATE [Concomitant]
     Indication: MULTIPLE MYELOMA
     Route: 065
     Dates: start: 20021023, end: 20021026
  6. VINCRISTINE SULFATE [Concomitant]
     Route: 065
     Dates: start: 20021101, end: 20021104
  7. VINCRISTINE SULFATE [Concomitant]
     Route: 065
     Dates: start: 20021207, end: 20021210
  8. VINCRISTINE SULFATE [Concomitant]
     Route: 065
     Dates: start: 20021215, end: 20021218
  9. DOXORUBICIN HYDROCHLORIDE [Concomitant]
     Indication: MULTIPLE MYELOMA
     Route: 065
     Dates: start: 20021023, end: 20021026
  10. DOXORUBICIN HYDROCHLORIDE [Concomitant]
     Route: 065
     Dates: start: 20021101, end: 20021104
  11. DOXORUBICIN HYDROCHLORIDE [Concomitant]
     Route: 065
     Dates: start: 20021207, end: 20021210
  12. DOXORUBICIN HYDROCHLORIDE [Concomitant]
     Route: 065
     Dates: start: 20021215, end: 20021218

REACTIONS (2)
  - HYPERGLYCAEMIA [None]
  - MULTIPLE MYELOMA [None]
